FAERS Safety Report 6289362-0 (Version None)
Quarter: 2009Q3

REPORT INFORMATION
  Report Type: 
  Country: None (occurrence: None)
  Receive Date: 20090728
  Receipt Date: 20090728
  Transmission Date: 20100115
  Serious: Yes (Other)
  Sender: FDA-Public Use
  Company Number: None

PATIENT
  Age: 5 Year
  Sex: Female
  Weight: 38.1022 kg

DRUGS (1)
  1. SINGULAIR 5 MG CHEWABLE TAB [Suspect]
     Indication: ASTHMA
     Dates: start: 20090623, end: 20090714

REACTIONS (4)
  - AGITATION [None]
  - ANXIETY [None]
  - HALLUCINATION, VISUAL [None]
  - HEADACHE [None]
